FAERS Safety Report 20442690 (Version 1)
Quarter: 2022Q1

REPORT INFORMATION
  Report Type: Spontaneous
  Country: JP (occurrence: JP)
  Receive Date: 20220208
  Receipt Date: 20220208
  Transmission Date: 20220423
  Serious: Yes (Other)
  Sender: FDA-Public Use
  Company Number: JP-NOVARTISPH-NVSJ2022JP002600

PATIENT
  Sex: Male

DRUGS (1)
  1. METFORMIN HYDROCHLORIDE\VILDAGLIPTIN [Suspect]
     Active Substance: METFORMIN HYDROCHLORIDE\VILDAGLIPTIN
     Indication: Product used for unknown indication
     Dosage: 1DF: METFORMIN HYDROCHLORIDE 500MG/ VILDAGLIPTIN 50MG, UNK
     Route: 048

REACTIONS (4)
  - Pancreatolithiasis [Unknown]
  - Blood glucose increased [Unknown]
  - Weight increased [Unknown]
  - Gamma-glutamyltransferase increased [Unknown]
